FAERS Safety Report 8015771-5 (Version None)
Quarter: 2011Q4

REPORT INFORMATION
  Report Type: 
  Country: None (occurrence: None)
  Receive Date: 20111230
  Receipt Date: 20111226
  Transmission Date: 20120403
  Serious: Yes (Hospitalization)
  Sender: FDA-Public Use
  Company Number: JP-ROCHE-1005545

PATIENT
  Sex: Male
  Weight: 68 kg

DRUGS (9)
  1. FAMOTIDINE [Concomitant]
     Indication: HIV INFECTION
     Route: 048
     Dates: start: 20110203, end: 20110331
  2. ETHAMBUTOL HYDROCHLORIDE [Concomitant]
     Route: 048
     Dates: start: 20110128, end: 20110331
  3. MYCOBUTIN [Concomitant]
     Route: 048
     Dates: start: 20110225, end: 20110331
  4. EMTRICITABINE AND TENOFOVIR DISOPROXIL FUMARATE [Suspect]
     Indication: HIV INFECTION
     Route: 048
     Dates: start: 20110225, end: 20110331
  5. CLARITHROMYCIN [Concomitant]
     Route: 048
     Dates: start: 20110127, end: 20110331
  6. RITONAVIR [Suspect]
     Indication: HIV INFECTION
     Route: 048
     Dates: start: 20110225, end: 20110331
  7. DARUNAVIR [Suspect]
     Indication: HIV INFECTION
     Route: 048
     Dates: start: 20110225, end: 20110331
  8. CIPROFLOXACIN HCL [Concomitant]
     Route: 048
     Dates: start: 20110127, end: 20110331
  9. VALCYTE [Suspect]
     Indication: CYTOMEGALOVIRUS INFECTION
     Route: 048
     Dates: start: 20110311, end: 20110331

REACTIONS (1)
  - MYCOBACTERIAL INFECTION [None]
